FAERS Safety Report 5046040-3 (Version None)
Quarter: 2006Q3

REPORT INFORMATION
  Report Type: 
  Country: None (occurrence: None)
  Receive Date: 20060710
  Receipt Date: 20060413
  Transmission Date: 20061208
  Serious: Yes (Other)
  Sender: FDA-Public Use
  Company Number: PHRM2006FR01362

PATIENT
  Age: 84 Year
  Sex: Female
  Weight: 66 kg

DRUGS (5)
  1. ZOMETA [Suspect]
     Indication: MULTIPLE MYELOMA
     Dosage: 4 MG, QMO
     Route: 042
     Dates: start: 20040901, end: 20051001
  2. AREDIA [Suspect]
     Indication: MULTIPLE MYELOMA
     Dosage: 90 MG EVERY 6 WEEKS
     Route: 042
     Dates: start: 20000801, end: 20011101
  3. ALKERAN [Concomitant]
     Dates: start: 20000801, end: 20011101
  4. ALKERAN [Concomitant]
     Dates: start: 20040901, end: 20050801
  5. THALIDOMIDE [Concomitant]
     Dosage: 200 MG/DAY
     Dates: start: 20050901

REACTIONS (3)
  - FISTULA [None]
  - MUCOSAL ULCERATION [None]
  - OSTEONECROSIS [None]
